FAERS Safety Report 9909156 (Version 1)
Quarter: 2014Q1

REPORT INFORMATION
  Report Type: Spontaneous
  Country: VN (occurrence: VN)
  Receive Date: 20140219
  Receipt Date: 20140219
  Transmission Date: 20141002
  Serious: Yes (Other)
  Sender: FDA-Public Use
  Company Number: VN-ROCHE-1349334

PATIENT
  Age: 58 Year
  Sex: Female

DRUGS (11)
  1. RITUXIMAB [Suspect]
     Indication: MANTLE CELL LYMPHOMA
     Route: 041
     Dates: start: 20121018
  2. METHOTREXATE [Suspect]
     Indication: MANTLE CELL LYMPHOMA
     Route: 028
     Dates: start: 20121018
  3. METHOTREXATE [Suspect]
     Route: 041
  4. CYCLOPHOSPHAMIDE [Concomitant]
     Indication: MANTLE CELL LYMPHOMA
     Route: 041
     Dates: start: 20121018
  5. VINCRISTIN [Concomitant]
     Indication: MANTLE CELL LYMPHOMA
     Route: 042
     Dates: start: 20121018
  6. DOXORUBICIN [Concomitant]
     Indication: MANTLE CELL LYMPHOMA
     Route: 041
     Dates: start: 20121018
  7. DEXAMETHASONE [Concomitant]
     Indication: MANTLE CELL LYMPHOMA
     Route: 042
     Dates: start: 20121018
  8. DEXAMETHASONE [Concomitant]
     Dosage: 1 AMPOULE
     Route: 042
  9. FOLINATE DE CALCIUM [Concomitant]
     Indication: MANTLE CELL LYMPHOMA
     Route: 042
  10. CYTARABIN [Concomitant]
     Route: 042
  11. FILGRASTIM [Concomitant]
     Route: 065
     Dates: start: 20121018

REACTIONS (11)
  - Eye pain [Unknown]
  - Headache [Unknown]
  - Diarrhoea [Unknown]
  - Fatigue [Unknown]
  - Headache [Unknown]
  - White blood cell count decreased [Unknown]
  - Platelet count decreased [Unknown]
  - Arthralgia [Unknown]
  - Afferent loop syndrome [Unknown]
  - Haemoglobin decreased [Unknown]
  - Anaemia [Unknown]
